FAERS Safety Report 6679508-4 (Version None)
Quarter: 2010Q2

REPORT INFORMATION
  Report Type: 
  Country: None (occurrence: None)
  Receive Date: 20100413
  Receipt Date: 20100405
  Transmission Date: 20101027
  Serious: Yes (Other)
  Sender: FDA-Public Use
  Company Number: US-JNJFOC-20100401066

PATIENT
  Sex: Male
  Weight: 108.86 kg

DRUGS (11)
  1. SIMPONI [Suspect]
     Indication: RHEUMATOID ARTHRITIS
     Route: 058
  2. REMERON [Concomitant]
     Indication: DEPRESSION
  3. METOPROLOL TARTRATE [Concomitant]
     Indication: HYPERTENSION
  4. LASIX [Concomitant]
  5. FLOMAX [Concomitant]
     Indication: PROSTATOMEGALY
  6. PREDNISONE [Concomitant]
     Route: 048
  7. METHOTREXATE [Concomitant]
  8. SPIRIVA [Concomitant]
  9. AMLODIPINE [Concomitant]
     Indication: HYPERTENSION
  10. LORAZEPAM [Concomitant]
     Indication: ANXIETY
  11. PRAVASTATIN [Concomitant]
     Indication: HYPERCHOLESTEROLAEMIA

REACTIONS (2)
  - HYPERSENSITIVITY [None]
  - SWOLLEN TONGUE [None]
